FAERS Safety Report 5141132-2 (Version None)
Quarter: 2006Q4

REPORT INFORMATION
  Report Type: 
  Country: None (occurrence: None)
  Receive Date: 20061026
  Receipt Date: 20061017
  Transmission Date: 20070319
  Serious: Yes (Hospitalization)
  Sender: FDA-Public Use
  Company Number: 6026627

PATIENT
  Age: 19 Year
  Sex: Female

DRUGS (7)
  1. BISOPROLOL FUMARATE [Suspect]
     Indication: DRUG USE FOR UNKNOWN INDICATION
     Dosage: 1 DOSAGE ORAL
     Route: 048
  2. COZAAR [Suspect]
     Indication: DRUG USE FOR UNKNOWN INDICATION
     Dosage: 1 DOSAGE ORAL
     Route: 048
  3. RAPAMUNE [Suspect]
     Indication: DRUG USE FOR UNKNOWN INDICATION
     Dosage: 4 MG (4 MG, 1 D) ORAL
     Route: 048
     Dates: start: 20050716
  4. LERCANIDIPINE [Suspect]
     Indication: DRUG USE FOR UNKNOWN INDICATION
     Dosage: 1 DOSAGE FORMS (1 DOSAGE FORMS, 1 IN 1 D) ORAL
     Route: 048
  5. RAMIPRIL [Suspect]
     Indication: DRUG USE FOR UNKNOWN INDICATION
     Dosage: 10 MG (5 MG.2 IN 1 D)
     Route: 048
  6. CELLCEPT [Suspect]
     Indication: DRUG USE FOR UNKNOWN INDICATION
     Dosage: 4 DOSAGE FORMS (2 DOSAGE FORMS 2 IN 1D)
     Route: 048
     Dates: start: 20060716
  7. LUTERAN (CHLORAMDINONE ACETATE) [Suspect]
     Indication: DRUG USE FOR UNKNOWN INDICATION
     Dosage: ORAL
     Route: 048

REACTIONS (7)
  - ARTERIOVENOUS FISTULA [None]
  - CARDIAC FAILURE ACUTE [None]
  - CYANOSIS [None]
  - DRUG INEFFECTIVE [None]
  - HYPOXIA [None]
  - PHLEBITIS [None]
  - PULMONARY HYPERTENSION [None]
